FAERS Safety Report 9422778 (Version 1)
Quarter: 2013Q3

REPORT INFORMATION
  Report Type: Spontaneous
  Country: US (occurrence: None)
  Receive Date: 20130724
  Receipt Date: 20130724
  Transmission Date: 20140515
  Serious: Yes (Hospitalization)
  Sender: FDA-Public Use
  Company Number: IMP_06751_2013

PATIENT
  Age: 60 Year
  Sex: Male

DRUGS (1)
  1. METFORMIN [Suspect]
     Indication: PRODUCT USED FOR UNKNOWN INDICATION

REACTIONS (14)
  - Lethargy [None]
  - Blindness [None]
  - Vomiting [None]
  - Diarrhoea [None]
  - Alcohol use [None]
  - Tachycardia [None]
  - Tachypnoea [None]
  - Somnolence [None]
  - Lactic acidosis [None]
  - Haemodialysis [None]
  - Vision blurred [None]
  - Dehydration [None]
  - Renal failure acute [None]
  - Toxicity to various agents [None]
